FAERS Safety Report 20483442 (Version 4)
Quarter: 2022Q3

REPORT INFORMATION
  Report Type: Spontaneous
  Country: BE (occurrence: None)
  Receive Date: 20220217
  Receipt Date: 20220812
  Transmission Date: 20221027
  Serious: Yes (Other)
  Sender: FDA-Public Use
  Company Number: BE-ROCHE-3026367

PATIENT
  Age: 51 Year
  Sex: Female

DRUGS (7)
  1. MABTHERA [Suspect]
     Active Substance: RITUXIMAB
     Indication: Multiple sclerosis
     Dosage: PRODUCT DOSAGE FORM: MABTHERA 500MG IV?LAST DOSE: 18/SEP/2020
     Route: 042
     Dates: start: 20180118
  2. MABTHERA [Suspect]
     Active Substance: RITUXIMAB
     Dosage: PRODUCT DOSAGE FORM: MABTHERA 500MG IV?LAST DOSE: 18/SEP/2020
     Route: 042
     Dates: start: 20181213
  3. MABTHERA [Suspect]
     Active Substance: RITUXIMAB
     Dosage: PRODUCT DOSAGE FORM: MABTHERA 500MG IV?LAST DOSE: 18/SEP/2020
     Route: 042
     Dates: start: 20190704
  4. MABTHERA [Suspect]
     Active Substance: RITUXIMAB
     Dosage: PRODUCT DOSAGE FORM: MABTHERA 500MG IV?LAST DOSE: 18/SEP/2020
     Route: 042
     Dates: start: 20200918
  5. RANITIDINE [Concomitant]
     Active Substance: RANITIDINE
     Route: 048
     Dates: start: 2018, end: 2020
  6. ACETAMINOPHEN [Concomitant]
     Active Substance: ACETAMINOPHEN
     Route: 042
     Dates: start: 2018, end: 2020
  7. SOLU-MEDROL [Concomitant]
     Active Substance: METHYLPREDNISOLONE SODIUM SUCCINATE
     Route: 042
     Dates: start: 2018, end: 2020

REACTIONS (1)
  - Malignant melanoma [Not Recovered/Not Resolved]

NARRATIVE: CASE EVENT DATE: 20211206
